FAERS Safety Report 23508745 (Version 2)
Quarter: 2024Q1

REPORT INFORMATION
  Report Type: Spontaneous
  Country: US (occurrence: US)
  Receive Date: 20240209
  Receipt Date: 20240326
  Transmission Date: 20240409
  Serious: No
  Sender: FDA-Public Use
  Company Number: US-MYLANLABS-2024M1008043

PATIENT
  Sex: Female
  Weight: 97.52 kg

DRUGS (1)
  1. WIXELA INHUB [Suspect]
     Active Substance: FLUTICASONE PROPIONATE\SALMETEROL XINAFOATE
     Indication: Asthma
     Dosage: UNK (ONCE A DAY OR AS NEEDED)
     Route: 065

REACTIONS (4)
  - Product dose omission issue [Unknown]
  - Off label use [Unknown]
  - Device mechanical issue [Unknown]
  - Product quality issue [Unknown]
